FAERS Safety Report 7264475-5 (Version None)
Quarter: 2011Q1

REPORT INFORMATION
  Report Type: 
  Country: None (occurrence: None)
  Receive Date: 20110131
  Receipt Date: 20110120
  Transmission Date: 20110831
  Serious: Yes (Hospitalization)
  Sender: FDA-Public Use
  Company Number: SE-JNJFOC-20110105594

PATIENT
  Age: 25 Year
  Sex: Male

DRUGS (1)
  1. REMICADE [Suspect]
     Indication: CROHN'S DISEASE
     Route: 042

REACTIONS (6)
  - HYPERHIDROSIS [None]
  - ACNE [None]
  - ANGIOEDEMA [None]
  - DRUG HYPERSENSITIVITY [None]
  - TIC [None]
  - LYMPHADENOPATHY [None]
